FAERS Safety Report 9856293 (Version 3)
Quarter: 2014Q1

REPORT INFORMATION
  Report Type: Spontaneous
  Country: DK (occurrence: DK)
  Receive Date: 20140130
  Receipt Date: 20140221
  Transmission Date: 20141002
  Serious: Yes (Other)
  Sender: FDA-Public Use
  Company Number: DK-ALLERGAN-1401524US

PATIENT
  Age: 55 Year
  Sex: Female

DRUGS (2)
  1. GANFORT [Suspect]
     Indication: GLAUCOMA
     Dosage: 1 DROP IN EACH EYE IN THE EVENING
     Route: 047
  2. EUTHYROX [Concomitant]
     Indication: HYPOMETABOLISM

REACTIONS (6)
  - Hypersensitivity [Recovered/Resolved]
  - Swelling face [Recovered/Resolved]
  - Eye swelling [Recovered/Resolved]
  - Visual impairment [Recovered/Resolved]
  - Eye pruritus [Recovered/Resolved]
  - Ocular hyperaemia [Recovered/Resolved]
